APPROVED DRUG PRODUCT: RITALIN-SR
Active Ingredient: METHYLPHENIDATE HYDROCHLORIDE
Strength: 20MG **Federal Register determination that product was not discontinued or withdrawn for safety or effectiveness reasons**
Dosage Form/Route: TABLET, EXTENDED RELEASE;ORAL
Application: N018029 | Product #001
Applicant: NOVARTIS PHARMACEUTICALS CORP
Approved: Mar 30, 1982 | RLD: Yes | RS: No | Type: DISCN